FAERS Safety Report 13468318 (Version 1)
Quarter: 2017Q2

REPORT INFORMATION
  Report Type: Other
  Country: GB (occurrence: US)
  Receive Date: 20170421
  Receipt Date: 20170421
  Transmission Date: 20170830
  Serious: Yes (Other)
  Sender: FDA-Public Use
  Company Number: US-CLARIS PHARMASERVICES-1065642

PATIENT
  Age: 7 Year
  Sex: Male

DRUGS (4)
  1. BUSULFAN. [Suspect]
     Active Substance: BUSULFAN
     Route: 065
  2. METRONIDAZOLE. [Suspect]
     Active Substance: METRONIDAZOLE
     Route: 065
  3. CLOFARABINE. [Concomitant]
     Active Substance: CLOFARABINE
     Route: 065
  4. THIOTEPA. [Concomitant]
     Active Substance: THIOTEPA
     Route: 065

REACTIONS (1)
  - Drug interaction [Unknown]
